FAERS Safety Report 18594889 (Version 1)
Quarter: 2020Q4

REPORT INFORMATION
  Report Type: Spontaneous
  Country: CA (occurrence: CA)
  Receive Date: 20201209
  Receipt Date: 20201209
  Transmission Date: 20210114
  Serious: Yes (Hospitalization, Other)
  Sender: FDA-Public Use
  Company Number: CA-PFIZER INC-2020474876

PATIENT
  Age: 65 Year
  Sex: Male

DRUGS (6)
  1. DEPO-MEDROL [Suspect]
     Active Substance: METHYLPREDNISOLONE ACETATE
     Dosage: 40 MG (R WRIST)
     Dates: start: 20201015, end: 20201015
  2. DEPO-MEDROL [Suspect]
     Active Substance: METHYLPREDNISOLONE ACETATE
     Dosage: 80 MG (L KNEE)
     Dates: start: 20201015, end: 20201015
  3. NAPROXEN. [Concomitant]
     Active Substance: NAPROXEN
     Dosage: UNK
     Route: 065
  4. TYLENOL [Concomitant]
     Active Substance: ACETAMINOPHEN
     Dosage: UNK
     Route: 065
  5. PANTOPRAZOLE [Concomitant]
     Active Substance: PANTOPRAZOLE
     Dosage: UNK
     Route: 065
  6. TRAMADOL. [Concomitant]
     Active Substance: TRAMADOL
     Dosage: UNK
     Route: 065

REACTIONS (6)
  - Movement disorder [Unknown]
  - Gait disturbance [Unknown]
  - Joint swelling [Unknown]
  - Pain [Unknown]
  - Injection site joint infection [Recovered/Resolved]
  - Stress [Unknown]
